FAERS Safety Report 7782158-X (Version None)
Quarter: 2011Q3

REPORT INFORMATION
  Report Type: 
  Country: None (occurrence: None)
  Receive Date: 20110927
  Receipt Date: 20110922
  Transmission Date: 20111222
  Serious: Yes (Hospitalization)
  Sender: FDA-Public Use
  Company Number: CH-BAYER-2011-089105

PATIENT
  Sex: Male

DRUGS (11)
  1. NEXIUM [Concomitant]
     Dosage: 40 MG, QD
     Route: 048
     Dates: start: 20110605
  2. OLMESARTAN MEDOXOMIL [Concomitant]
  3. AMLODIPINE [Concomitant]
     Dosage: 5 MG, QD
     Route: 048
  4. VANCOMYCIN [Concomitant]
     Dosage: 750 MG, BID
     Route: 041
     Dates: start: 20110706, end: 20110714
  5. CIPROFLAXACIN [Suspect]
     Dosage: 500 MG, BID
     Route: 048
     Dates: start: 20110512, end: 20110525
  6. ASPIRIN [Concomitant]
     Dosage: 100 MG, QD
     Route: 048
  7. PIPERACILLIN [Concomitant]
     Dosage: 4.5 G, TID
     Route: 041
     Dates: start: 20110609, end: 20110711
  8. OXCARBAZEPINE [Suspect]
     Dosage: 750 MG, QD
     Route: 048
     Dates: start: 20110701
  9. PRAVASTATIN [Concomitant]
     Dosage: 20 MG, QD
     Route: 048
  10. CIPROFLAXACIN [Suspect]
     Dosage: 500 MG, BID
     Dates: start: 20110603
  11. NEBIVOLOL HCL [Concomitant]

REACTIONS (2)
  - INAPPROPRIATE ANTIDIURETIC HORMONE SECRETION [None]
  - HYPONATRAEMIA [None]
